FAERS Safety Report 6026957-3 (Version None)
Quarter: 2009Q1

REPORT INFORMATION
  Report Type: 
  Country: None (occurrence: None)
  Receive Date: 20090105
  Receipt Date: 20081223
  Transmission Date: 20090719
  Serious: Yes (Hospitalization)
  Sender: FDA-Public Use
  Company Number: PHHY2008FR27915

PATIENT
  Sex: Male
  Weight: 80 kg

DRUGS (7)
  1. EXELON [Suspect]
     Indication: DEMENTIA ALZHEIMER'S TYPE
     Dosage: 4.5 MG, BID
  2. DEPAKENE [Concomitant]
     Indication: EPILEPSY
     Dosage: 2 DF DAILY
  3. MODOPAR [Concomitant]
  4. KARDEGIC [Concomitant]
     Dosage: UNK
     Route: 048
  5. OLMETEC [Concomitant]
     Dosage: UNK
     Route: 048
  6. LERCAN [Concomitant]
     Dosage: UNK
     Route: 048
  7. FUROSEMIDE [Concomitant]
     Dosage: UNK
     Route: 048

REACTIONS (2)
  - BRAIN INJURY [None]
  - STATUS EPILEPTICUS [None]
